FAERS Safety Report 19907118 (Version 1)
Quarter: 2021Q3

REPORT INFORMATION
  Report Type: Spontaneous
  Country: US (occurrence: US)
  Receive Date: 20210930
  Receipt Date: 20210930
  Transmission Date: 20211014
  Serious: Yes (Hospitalization, Other)
  Sender: FDA-Public Use
  Company Number: None

PATIENT
  Age: 20 Month
  Sex: Male
  Weight: 3.7 kg

DRUGS (4)
  1. LEXAPRO [Suspect]
     Active Substance: ESCITALOPRAM OXALATE
  2. SEROQUEL [Concomitant]
     Active Substance: QUETIAPINE FUMARATE
  3. ATIVAN [Suspect]
     Active Substance: LORAZEPAM
  4. KLONOPIN [Suspect]
     Active Substance: CLONAZEPAM

REACTIONS (2)
  - Hypoglycaemia [None]
  - Respiratory distress [None]

NARRATIVE: CASE EVENT DATE: 20190316
